FAERS Safety Report 17216342 (Version 3)
Quarter: 2020Q1

REPORT INFORMATION
  Report Type: Spontaneous
  Country: US (occurrence: US)
  Receive Date: 20191230
  Receipt Date: 20200205
  Transmission Date: 20200409
  Serious: Yes (Other)
  Sender: FDA-Public Use
  Company Number: US-RECORDATI RARE DISEASES-2078337

PATIENT
  Age: 66 Year
  Sex: Female
  Weight: 68.3 kg

DRUGS (1)
  1. CYSTADANE [Suspect]
     Active Substance: BETAINE
     Indication: HOMOCYSTINURIA
     Dates: start: 201501, end: 2019

REACTIONS (4)
  - Ligament rupture [Unknown]
  - Therapy cessation [Recovered/Resolved]
  - Foot fracture [Unknown]
  - Tendon rupture [Unknown]

NARRATIVE: CASE EVENT DATE: 2019
